FAERS Safety Report 10933611 (Version 1)
Quarter: 2015Q1

REPORT INFORMATION
  Report Type: Spontaneous
  Country: JP (occurrence: JP)
  Receive Date: 20150320
  Receipt Date: 20150320
  Transmission Date: 20150721
  Serious: Yes (Other)
  Sender: FDA-Public Use
  Company Number: JP-PFIZER INC-2015099428

PATIENT
  Age: 79 Year
  Sex: Female

DRUGS (1)
  1. LIPITOR [Suspect]
     Active Substance: ATORVASTATIN CALCIUM
     Dosage: 2 DF, UNK
     Route: 048
     Dates: start: 20150220, end: 20150220

REACTIONS (5)
  - Agitation [Unknown]
  - Contusion [Unknown]
  - Blood pressure increased [Unknown]
  - Medication error [Unknown]
  - Internal haemorrhage [Unknown]

NARRATIVE: CASE EVENT DATE: 20150220
